FAERS Safety Report 4682131-4 (Version None)
Quarter: 2005Q2

REPORT INFORMATION
  Report Type: 
  Country: None (occurrence: None)
  Receive Date: 20050603
  Receipt Date: 20050603
  Transmission Date: 20051028
  Serious: Yes (Other)
  Sender: FDA-Public Use
  Company Number: None

PATIENT
  Sex: Female
  Weight: 58.9676 kg

DRUGS (2)
  1. FENTANYL [Suspect]
     Indication: BACK PAIN
     Dosage: APPLY PATCH   Q 48 HOURS  TRANSDERMAL
     Route: 062
     Dates: start: 20050302, end: 20050501
  2. FENTANYL [Suspect]
     Indication: BACK PAIN
     Dosage: APPLY PATCH     Q 48 HOURS     TRANSDERMA
     Route: 062
     Dates: start: 20050502, end: 20050602

REACTIONS (6)
  - HYPERHIDROSIS [None]
  - INADEQUATE ANALGESIA [None]
  - IRRITABILITY [None]
  - NAUSEA [None]
  - PAIN [None]
  - PHARMACEUTICAL PRODUCT COMPLAINT [None]
